FAERS Safety Report 4930699-2 (Version None)
Quarter: 2006Q1

REPORT INFORMATION
  Report Type: 
  Country: None (occurrence: None)
  Receive Date: 20060227
  Receipt Date: 20060217
  Transmission Date: 20060701
  Serious: Yes (Death)
  Sender: FDA-Public Use
  Company Number: 2006024626

PATIENT
  Sex: Male

DRUGS (7)
  1. LYRICA [Suspect]
     Indication: ILL-DEFINED DISORDER
  2. CELEBREX [Concomitant]
  3. ZOCOR [Concomitant]
  4. DOXAZOSIN MESYLATE [Concomitant]
  5. FUROSEMIDE (FUORSEMIDE) [Concomitant]
  6. COLCHICUM JTL LIQ [Concomitant]
  7. VITAMINS [Concomitant]

REACTIONS (13)
  - ASTHENIA [None]
  - CARDIAC FAILURE [None]
  - COLD SWEAT [None]
  - CONFUSIONAL STATE [None]
  - DIARRHOEA [None]
  - FLATULENCE [None]
  - MEMORY IMPAIRMENT [None]
  - MUSCLE TWITCHING [None]
  - OEDEMA [None]
  - RENAL FAILURE ACUTE [None]
  - SEPSIS [None]
  - SOMNOLENCE [None]
  - VOMITING [None]
